FAERS Safety Report 14821730 (Version 1)
Quarter: 2018Q2

REPORT INFORMATION
  Report Type: Report from Study
  Country: US (occurrence: US)
  Receive Date: 20180427
  Receipt Date: 20180427
  Transmission Date: 20180711
  Serious: Yes (Hospitalization)
  Sender: FDA-Public Use
  Company Number: US-EISAI MEDICAL RESEARCH-EC-2017-032555

PATIENT
  Age: 72 Year
  Sex: Male

DRUGS (6)
  1. LENVIMA [Suspect]
     Active Substance: LENVATINIB
     Route: 048
     Dates: start: 20171202, end: 20171218
  2. LENVIMA [Suspect]
     Active Substance: LENVATINIB
     Route: 048
     Dates: start: 201801, end: 20180325
  3. AFINITOR [Suspect]
     Active Substance: EVEROLIMUS
     Dosage: UNKNOWN
     Route: 048
     Dates: start: 201803, end: 20180325
  4. LENVIMA [Suspect]
     Active Substance: LENVATINIB
     Indication: RENAL CANCER
     Route: 048
     Dates: start: 20171014, end: 20171024
  5. AFINITOR [Suspect]
     Active Substance: EVEROLIMUS
     Dosage: UNKNOWN
     Route: 048
     Dates: start: 201802, end: 20180318
  6. AFINITOR [Suspect]
     Active Substance: EVEROLIMUS
     Indication: RENAL CANCER
     Dosage: UNKNOWN
     Route: 048
     Dates: start: 20171014, end: 201712

REACTIONS (15)
  - Dysgeusia [Recovering/Resolving]
  - Diarrhoea [Recovering/Resolving]
  - Gallbladder disorder [Not Recovered/Not Resolved]
  - Blood pressure increased [Not Recovered/Not Resolved]
  - Fatigue [Not Recovered/Not Resolved]
  - Epistaxis [Not Recovered/Not Resolved]
  - Hypotension [Recovering/Resolving]
  - Dysphonia [Not Recovered/Not Resolved]
  - Swollen tongue [Recovering/Resolving]
  - Dizziness [Recovering/Resolving]
  - Blood creatinine increased [Not Recovered/Not Resolved]
  - Renal disorder [Not Recovered/Not Resolved]
  - Vomiting [Recovering/Resolving]
  - Mouth haemorrhage [Recovering/Resolving]
  - Influenza like illness [Recovered/Resolved]

NARRATIVE: CASE EVENT DATE: 201710
